FAERS Safety Report 10235329 (Version 2)
Quarter: 2014Q2

REPORT INFORMATION
  Report Type: Spontaneous
  Country: US (occurrence: US)
  Receive Date: 20140613
  Receipt Date: 20140613
  Transmission Date: 20141212
  Serious: No
  Sender: FDA-Public Use
  Company Number: US-PFIZER INC-2014157788

PATIENT
  Age: 50 Year
  Sex: Female

DRUGS (3)
  1. CELEBREX [Suspect]
     Indication: FIBROMYALGIA
     Dosage: 200 MG, DAILY
     Dates: start: 201403, end: 201404
  2. CELEBREX [Suspect]
     Indication: INFLAMMATION
  3. CELEBREX [Suspect]
     Indication: OSTEOARTHRITIS

REACTIONS (5)
  - Abdominal pain upper [Recovered/Resolved]
  - Agitation [Recovered/Resolved]
  - Rash macular [Recovered/Resolved]
  - Diarrhoea [Recovered/Resolved]
  - Heart rate increased [Recovered/Resolved]
